FAERS Safety Report 25080789 (Version 1)
Quarter: 2025Q1

REPORT INFORMATION
  Report Type: Spontaneous
  Country: BG (occurrence: BG)
  Receive Date: 20250315
  Receipt Date: 20250315
  Transmission Date: 20250409
  Serious: Yes (Hospitalization)
  Sender: MANKIND PHARMA
  Company Number: BG-MankindUS-000341

PATIENT
  Age: 64 Year
  Sex: Female

DRUGS (7)
  1. CHLORTHALIDONE [Suspect]
     Active Substance: CHLORTHALIDONE
     Indication: Hypertension
     Dosage: ONCE IN THE MORNING
     Dates: start: 202304
  2. VALSARTAN [Suspect]
     Active Substance: VALSARTAN
     Indication: Hypertension
     Dates: start: 202304
  3. BISOPROLOL FUMARATE [Suspect]
     Active Substance: BISOPROLOL FUMARATE
     Indication: Hypertension
     Dates: start: 202304
  4. SPIRONOLACTONE [Suspect]
     Active Substance: SPIRONOLACTONE
     Indication: Hypertension
     Dosage: ONCE IN THE MORNING
     Dates: start: 202304
  5. CLOPIDOGREL [Concomitant]
     Active Substance: CLOPIDOGREL BISULFATE
     Dates: start: 202304
  6. BETAHISTINE [Concomitant]
     Active Substance: BETAHISTINE
     Dates: start: 202304
  7. ROSUVASTATIN [Concomitant]
     Active Substance: ROSUVASTATIN
     Dosage: ONCE IN THE EVENING
     Dates: start: 202304

REACTIONS (1)
  - Lichen planopilaris [Recovering/Resolving]
